FAERS Safety Report 19673813 (Version 1)
Quarter: 2021Q3

REPORT INFORMATION
  Report Type: Spontaneous
  Country: US (occurrence: US)
  Receive Date: 20210806
  Receipt Date: 20210806
  Transmission Date: 20211014
  Serious: Yes (Hospitalization)
  Sender: FDA-Public Use
  Company Number: None

PATIENT
  Sex: Male

DRUGS (4)
  1. DROXIDOPA 300MG ZYDUS PHARMACEUTICALS(USA) [Suspect]
     Active Substance: DROXIDOPA
     Indication: FALL
     Route: 048
     Dates: start: 202104
  2. DROXIDOPA 300MG ZYDUS PHARMACEUTICALS(USA) [Suspect]
     Active Substance: DROXIDOPA
     Indication: SYNCOPE
     Route: 048
     Dates: start: 202104
  3. DROXIDOPA 300MG ZYDUS PHARMACEUTICALS(USA) [Suspect]
     Active Substance: DROXIDOPA
     Indication: PARKINSON^S DISEASE
     Route: 048
     Dates: start: 202104
  4. DROXIDOPA 300MG ZYDUS PHARMACEUTICALS(USA) [Suspect]
     Active Substance: DROXIDOPA
     Indication: ORTHOSTATIC HYPOTENSION
     Route: 048
     Dates: start: 202104

REACTIONS (2)
  - COVID-19 [None]
  - Dyspnoea [None]
